FAERS Safety Report 4976687-1 (Version None)
Quarter: 2006Q2

REPORT INFORMATION
  Report Type: 
  Country: None (occurrence: None)
  Receive Date: 20060419
  Receipt Date: 20050901
  Transmission Date: 20061013
  Serious: Yes (Other)
  Sender: FDA-Public Use
  Company Number: US-MERCK-0509USA00456

PATIENT
  Age: 63 Year
  Sex: Male

DRUGS (1)
  1. VIOXX [Suspect]
     Route: 048
     Dates: start: 20000801, end: 20030101

REACTIONS (10)
  - ADVERSE EVENT [None]
  - CORONARY ARTERY DISEASE [None]
  - DIASTOLIC DYSFUNCTION [None]
  - DILATATION ATRIAL [None]
  - GASTROOESOPHAGEAL REFLUX DISEASE [None]
  - HYPERCHOLESTEROLAEMIA [None]
  - HYPERTENSION [None]
  - INJURY [None]
  - MYOCARDIAL INFARCTION [None]
  - VENTRICULAR HYPERTROPHY [None]
